FAERS Safety Report 11555986 (Version 1)
Quarter: 2015Q3

REPORT INFORMATION
  Report Type: Spontaneous
  Country: US (occurrence: US)
  Receive Date: 20150916
  Receipt Date: 20150916
  Transmission Date: 20151125
  Serious: No
  Sender: FDA-Public Use
  Company Number: US-ELI_LILLY_AND_COMPANY-US200511001282

PATIENT
  Sex: Female

DRUGS (3)
  1. ACTONEL [Concomitant]
     Active Substance: RISEDRONATE SODIUM
  2. FOSAMAX [Concomitant]
     Active Substance: ALENDRONATE SODIUM
  3. FORTEO [Suspect]
     Active Substance: TERIPARATIDE
     Dates: start: 2003, end: 2005

REACTIONS (5)
  - Malaise [Not Recovered/Not Resolved]
  - Feeling abnormal [Unknown]
  - Pain [Unknown]
  - Peripheral swelling [Unknown]
  - Ill-defined disorder [Not Recovered/Not Resolved]
